FAERS Safety Report 7222730-9 (Version None)
Quarter: 2011Q1

REPORT INFORMATION
  Report Type: 
  Country: None (occurrence: None)
  Receive Date: 20110106
  Receipt Date: 20110106
  Transmission Date: 20110831
  Serious: Yes (Other)
  Sender: FDA-Public Use
  Company Number: None

PATIENT
  Age: 70 Year
  Sex: Male
  Weight: 90.9 kg

DRUGS (1)
  1. LEVAQUIN [Suspect]
     Indication: SINUSITIS
     Dosage: 1 500MG TAB 24HRS FOR 10 DAYS
     Dates: start: 20101222, end: 20101227

REACTIONS (6)
  - BONE PAIN [None]
  - ABDOMINAL DISTENSION [None]
  - DYSPEPSIA [None]
  - MUSCULOSKELETAL PAIN [None]
  - HICCUPS [None]
  - CHEST PAIN [None]
